FAERS Safety Report 7765419-X (Version None)
Quarter: 2011Q3

REPORT INFORMATION
  Report Type: 
  Country: None (occurrence: None)
  Receive Date: 20110921
  Receipt Date: 20110916
  Transmission Date: 20111222
  Serious: Yes (Other)
  Sender: FDA-Public Use
  Company Number: US-MERCK-1109USA01915

PATIENT
  Sex: Female

DRUGS (4)
  1. ACTONEL [Suspect]
     Route: 065
     Dates: start: 20030101, end: 20100101
  2. FOSAMAX [Suspect]
     Route: 048
     Dates: start: 20030101, end: 20100101
  3. FOSAMAX [Suspect]
     Route: 048
     Dates: start: 20030101, end: 20100101
  4. RISEDRONATE SODIUM [Suspect]
     Route: 065
     Dates: start: 20030101, end: 20100101

REACTIONS (1)
  - FEMUR FRACTURE [None]
